FAERS Safety Report 4333181-9 (Version None)
Quarter: 2004Q1

REPORT INFORMATION
  Report Type: 
  Country: None (occurrence: None)
  Receive Date: 20040330
  Receipt Date: 20020807
  Transmission Date: 20041129
  Serious: Yes (Life-Threatening, Hospitalization)
  Sender: FDA-Public Use
  Company Number: 2002IC000123

PATIENT
  Age: 76 Year
  Sex: Female
  Weight: 57.2 kg

DRUGS (10)
  1. FLUOROURACIL [Suspect]
     Indication: COLON CANCER
     Dosage: 675 MG; QD; INTRAVENOUS
     Route: 042
     Dates: start: 19990104, end: 19990108
  2. FOLINIC ACID (FOLINIC ACID) [Suspect]
     Indication: COLON CANCER
     Dosage: 31 MG; QD; INTRAVENOUS
     Route: 042
     Dates: start: 19990104, end: 19990108
  3. METRONIDAZOLE [Concomitant]
  4. SLOW-K [Concomitant]
  5. CEFUROXIME [Concomitant]
  6. RANITIDINE [Concomitant]
  7. CIPROFLOXACIN [Concomitant]
  8. RANITIDINE [Concomitant]
  9. CYCLIZINE [Concomitant]
  10. METOCLOPRAMIDE [Concomitant]

REACTIONS (4)
  - MUCOSAL INFLAMMATION [None]
  - NEUTROPENIC SEPSIS [None]
  - PYREXIA [None]
  - VOMITING [None]
